FAERS Safety Report 10039877 (Version 1)
Quarter: 2014Q1

REPORT INFORMATION
  Report Type: Report from Study
  Country: CA (occurrence: CA)
  Receive Date: 20140326
  Receipt Date: 20140326
  Transmission Date: 20141002
  Serious: Yes (Hospitalization, Other)
  Sender: FDA-Public Use
  Company Number: CA-JNJFOC-20140311804

PATIENT
  Sex: Female
  Weight: 53.07 kg

DRUGS (1)
  1. REMICADE [Suspect]
     Indication: CROHN^S DISEASE
     Route: 042
     Dates: end: 201308

REACTIONS (5)
  - Cerebrovascular accident [Unknown]
  - Epilepsy [Unknown]
  - Headache [Unknown]
  - Amnesia [Unknown]
  - Speech disorder [Unknown]
